FAERS Safety Report 15367325 (Version 1)
Quarter: 2018Q3

REPORT INFORMATION
  Report Type: Report from Study
  Country: GB (occurrence: GB)
  Receive Date: 20180910
  Receipt Date: 20180910
  Transmission Date: 20181010
  Serious: Yes (Death)
  Sender: FDA-Public Use
  Company Number: PHHY2018GB086931

PATIENT
  Age: 43 Year
  Sex: Male

DRUGS (1)
  1. ENTRESTO [Suspect]
     Active Substance: SACUBITRIL\VALSARTAN
     Indication: LEFT VENTRICULAR DYSFUNCTION
     Dosage: (SACUBITRIL 49 MG AND VALSARTAN 51 MG), BID
     Route: 048
     Dates: start: 20180526

REACTIONS (1)
  - Death [Fatal]

NARRATIVE: CASE EVENT DATE: 20180811
